FAERS Safety Report 6620421-6 (Version None)
Quarter: 2010Q1

REPORT INFORMATION
  Report Type: 
  Country: None (occurrence: None)
  Receive Date: 20100304
  Receipt Date: 20100216
  Transmission Date: 20100710
  Serious: Yes (Other)
  Sender: FDA-Public Use
  Company Number: KV201000059

PATIENT
  Sex: Male

DRUGS (1)
  1. MORPHINE SULFATE [Suspect]
     Indication: BACK INJURY
     Dosage: ORAL
     Route: 048
     Dates: start: 20071123, end: 20071126

REACTIONS (5)
  - CONVULSION [None]
  - NAUSEA [None]
  - PARALYSIS [None]
  - RESPIRATORY DISTRESS [None]
  - VOMITING [None]
